FAERS Safety Report 5764472-2 (Version None)
Quarter: 2008Q2

REPORT INFORMATION
  Report Type: 
  Country: None (occurrence: None)
  Receive Date: 20080610
  Receipt Date: 20080530
  Transmission Date: 20081010
  Serious: Yes (Death, Other)
  Sender: FDA-Public Use
  Company Number: US-PFIZER INC-2008034523

PATIENT
  Sex: Male

DRUGS (1)
  1. CHANTIX [Suspect]
     Dates: start: 20071217, end: 20080101

REACTIONS (5)
  - ABNORMAL DREAMS [None]
  - COMPLETED SUICIDE [None]
  - DEPRESSION [None]
  - NAUSEA [None]
  - PERSONALITY CHANGE [None]
